FAERS Safety Report 6702040-6 (Version None)
Quarter: 2010Q2

REPORT INFORMATION
  Report Type: 
  Country: None (occurrence: None)
  Receive Date: 20100429
  Receipt Date: 20100428
  Transmission Date: 20101027
  Serious: Yes (Other)
  Sender: FDA-Public Use
  Company Number: JP-BAYER-200811631BYL

PATIENT
  Age: 74 Year
  Sex: Male
  Weight: 62 kg

DRUGS (7)
  1. NEXAVAR [Suspect]
     Indication: RENAL CELL CARCINOMA
     Dosage: TOTAL DAILY DOSE: 800 MG  UNIT DOSE: 200 MG
     Route: 048
     Dates: start: 20080709, end: 20080718
  2. NEXAVAR [Suspect]
     Dosage: TOTAL DAILY DOSE: 400 MG  UNIT DOSE: 200 MG
     Route: 048
     Dates: start: 20080828, end: 20090203
  3. NEXAVAR [Suspect]
     Dosage: UNIT DOSE: 200 MG
     Route: 048
     Dates: start: 20080805, end: 20080812
  4. NITOROL R [Concomitant]
     Indication: ANGINA PECTORIS
     Route: 048
     Dates: start: 20060807
  5. HERBESSER [Concomitant]
     Indication: ANGINA PECTORIS
     Route: 048
     Dates: start: 20060807
  6. ASPIRIN [Concomitant]
     Dosage: UNIT DOSE: 100 MG
     Route: 048
     Dates: start: 20060807
  7. NORVASC [Concomitant]
     Route: 048
     Dates: start: 20060807

REACTIONS (3)
  - HEPATIC FUNCTION ABNORMAL [None]
  - LIPASE INCREASED [None]
  - PALMAR-PLANTAR ERYTHRODYSAESTHESIA SYNDROME [None]
